FAERS Safety Report 8984665 (Version 1)
Quarter: 2012Q4

REPORT INFORMATION
  Report Type: 
  Country: US (occurrence: US)
  Receive Date: 20121226
  Receipt Date: 20121226
  Transmission Date: 20130627
  Serious: Yes (Other)
  Sender: FDA-Public Use
  Company Number: US-ASTRAZENECA-2012SE94757

PATIENT
  Age: 699 Month
  Sex: Female
  Weight: 82.8 kg

DRUGS (4)
  1. NEXIUM [Suspect]
     Route: 048
     Dates: start: 20080506
  2. CLONAZEPAM [Concomitant]
     Route: 048
     Dates: start: 20080506
  3. NEURONTIN [Concomitant]
     Indication: PAIN
     Route: 048
     Dates: start: 20111126
  4. OXYCODONE HCL [Concomitant]
     Route: 048
     Dates: start: 20111126

REACTIONS (5)
  - Femur fracture [Unknown]
  - Fall [Unknown]
  - Type 2 diabetes mellitus [Unknown]
  - Hypertension [Unknown]
  - Osteoarthritis [Unknown]
